FAERS Safety Report 5797742-2 (Version None)
Quarter: 2008Q3

REPORT INFORMATION
  Report Type: 
  Country: None (occurrence: None)
  Receive Date: 20080702
  Receipt Date: 20080624
  Transmission Date: 20090109
  Serious: Yes (Death, Life-Threatening, Other)
  Sender: FDA-Public Use
  Company Number: GB-JNJFOC-20080504571

PATIENT
  Sex: Female
  Weight: 75 kg

DRUGS (4)
  1. REMICADE [Suspect]
     Indication: RHEUMATOID ARTHRITIS
     Route: 042
  2. METHOTREXATE [Concomitant]
  3. DICLOFENAC [Concomitant]
  4. DISTALGESIC [Concomitant]

REACTIONS (1)
  - LOBAR PNEUMONIA [None]
